FAERS Safety Report 16877245 (Version 1)
Quarter: 2019Q4

REPORT INFORMATION
  Report Type: Spontaneous
  Country: US (occurrence: US)
  Receive Date: 20191002
  Receipt Date: 20191002
  Transmission Date: 20200122
  Serious: Yes (Hospitalization)
  Sender: FDA-Public Use
  Company Number: None

PATIENT
  Age: 60 Year
  Sex: Male
  Weight: 75.6 kg

DRUGS (7)
  1. OXYCODONE 5MG [Concomitant]
     Active Substance: OXYCODONE
     Dates: start: 20180912, end: 20180912
  2. HYDROMORPHONE 0.25MG [Concomitant]
     Dates: start: 20180912, end: 20180912
  3. LIDOCAINE. [Suspect]
     Active Substance: LIDOCAINE
     Indication: POSTOPERATIVE ANALGESIA
     Dosage: ?          OTHER FREQUENCY:1.5MG/MIN;?
     Route: 041
     Dates: start: 20180912, end: 20180912
  4. CELECOXIB 100MG [Concomitant]
     Active Substance: CELECOXIB
     Dates: start: 20180912, end: 20180912
  5. ACETAMINOPHEN 1G [Concomitant]
     Dates: start: 20180912, end: 20180913
  6. TRAMADOL 50MG [Concomitant]
     Active Substance: TRAMADOL
     Dates: start: 20180912, end: 20180912
  7. DIAZEPAM 5MG [Concomitant]
     Active Substance: DIAZEPAM
     Dates: start: 20180912, end: 20180912

REACTIONS (1)
  - Vision blurred [None]

NARRATIVE: CASE EVENT DATE: 20180913
